FAERS Safety Report 5148327-2 (Version None)
Quarter: 2006Q4

REPORT INFORMATION
  Report Type: 
  Country: None (occurrence: None)
  Receive Date: 20061106
  Receipt Date: 20061026
  Transmission Date: 20070319
  Serious: Yes (Other)
  Sender: FDA-Public Use
  Company Number: 2006131915

PATIENT
  Age: 51 Year
  Sex: Male

DRUGS (2)
  1. GEMFIBROZIL [Suspect]
     Indication: DRUG USE FOR UNKNOWN INDICATION
  2. METRONIDAZOLE [Suspect]

REACTIONS (9)
  - ABDOMINAL PAIN UPPER [None]
  - ARTHROPATHY [None]
  - ASTHENIA [None]
  - DRUG TOXICITY [None]
  - DYSPHAGIA [None]
  - MUSCULAR WEAKNESS [None]
  - MYALGIA [None]
  - SKIN REACTION [None]
  - URTICARIA [None]
